FAERS Safety Report 7115388-0 (Version None)
Quarter: 2010Q4

REPORT INFORMATION
  Report Type: 
  Country: None (occurrence: None)
  Receive Date: 20101117
  Receipt Date: 20101117
  Transmission Date: 20110411
  Serious: Yes (Other)
  Sender: FDA-Public Use
  Company Number: None

PATIENT
  Age: 53 Year
  Sex: Male
  Weight: 88.4514 kg

DRUGS (2)
  1. SULFAMETHOXAZOLE AND TRIMETHOPRIM [Suspect]
     Dates: start: 20101102, end: 20101102
  2. SULFAMETHOXAZOLE AND TRIMETHOPRIM [Suspect]
     Dates: start: 20101103, end: 20101103

REACTIONS (3)
  - ARTHRALGIA [None]
  - HEADACHE [None]
  - PYREXIA [None]
